FAERS Safety Report 10228154 (Version 1)
Quarter: 2014Q2

REPORT INFORMATION
  Report Type: Spontaneous
  Country: US (occurrence: US)
  Receive Date: 20140610
  Receipt Date: 20140610
  Transmission Date: 20141212
  Serious: No
  Sender: FDA-Public Use
  Company Number: US-PFIZER INC-2014156197

PATIENT
  Sex: Female

DRUGS (10)
  1. LIPITOR [Suspect]
     Dosage: UNK
  2. MELOXICAM [Suspect]
     Dosage: UNK
  3. FOSAMAX [Suspect]
     Dosage: UNK
  4. CEPHALEXIN [Suspect]
     Dosage: UNK
  5. HALDOL [Suspect]
     Dosage: UNK
  6. LOVASTATIN [Suspect]
     Dosage: UNK
  7. PRAVASTATIN [Suspect]
     Dosage: UNK
  8. CRESTOR [Suspect]
     Dosage: UNK
  9. JANUVIA [Suspect]
     Dosage: UNK
  10. BACTRIM [Suspect]
     Dosage: UNK

REACTIONS (1)
  - Drug hypersensitivity [Unknown]
